FAERS Safety Report 19371270 (Version 1)
Quarter: 2021Q2

REPORT INFORMATION
  Report Type: Spontaneous
  Country: GB (occurrence: GB)
  Receive Date: 20210604
  Receipt Date: 20210604
  Transmission Date: 20210717
  Serious: Yes (Hospitalization, Disabling, Other)
  Sender: FDA-Public Use
  Company Number: GB-ALKEM LABORATORIES LIMITED-GB-ALKEM-2021-03098

PATIENT
  Age: 21 Year
  Sex: Female
  Weight: 81 kg

DRUGS (9)
  1. FULTIUM?D3 [Concomitant]
     Active Substance: CHOLECALCIFEROL
     Indication: VITAMIN D DEFICIENCY
     Dosage: UNK
     Route: 065
  2. ACCORD?UK AMITRIPTYLINE [Concomitant]
     Indication: PRODUCT USED FOR UNKNOWN INDICATION
     Dosage: UNK
     Route: 065
  3. CRESCENT PHARMA PARACETAMOL [Concomitant]
     Indication: BACK PAIN
     Dosage: UNK
     Route: 065
  4. PREGABALIN ZENTIVA [Concomitant]
     Active Substance: PREGABALIN
     Indication: NEURALGIA
     Dosage: UNK
     Route: 065
  5. DR REDDYS LABS UK OMEPRAZOLE [Concomitant]
     Indication: PRODUCT USED FOR UNKNOWN INDICATION
     Dosage: UNK
     Route: 065
  6. CODEINE PHOSPHATE [Concomitant]
     Active Substance: CODEINE PHOSPHATE
     Indication: PRODUCT USED FOR UNKNOWN INDICATION
     Dosage: UNK
     Route: 065
  7. QUETIAPINE FUMARATE. [Suspect]
     Active Substance: QUETIAPINE FUMARATE
     Indication: NEURALGIA
     Dosage: 75 MILLIGRAM
     Route: 048
     Dates: start: 20210326
  8. LACTULOSE SOLUTION [Concomitant]
     Active Substance: LACTULOSE
     Indication: CONSTIPATION
     Dosage: UNK
     Route: 065
  9. ACCORD HEALTHCARE SERTRALINE [Concomitant]
     Active Substance: SERTRALINE HYDROCHLORIDE
     Indication: PRODUCT USED FOR UNKNOWN INDICATION
     Dosage: UNK
     Route: 065

REACTIONS (9)
  - Fatigue [Unknown]
  - Paralysis [Recovering/Resolving]
  - Loss of consciousness [Unknown]
  - Seizure [Not Recovered/Not Resolved]
  - Muscle twitching [Unknown]
  - Dyspnoea [Unknown]
  - Fibromyalgia [Unknown]
  - Amnesia [Recovered/Resolved with Sequelae]
  - Tic [Not Recovered/Not Resolved]

NARRATIVE: CASE EVENT DATE: 20210401
